FAERS Safety Report 23644485 (Version 1)
Quarter: 2024Q1

REPORT INFORMATION
  Report Type: Spontaneous
  Country: ES (occurrence: ES)
  Receive Date: 20240318
  Receipt Date: 20240318
  Transmission Date: 20240410
  Serious: Yes (Other)
  Sender: FDA-Public Use
  Company Number: None

PATIENT
  Age: 30 Year
  Sex: Female

DRUGS (2)
  1. TRAMADOL [Suspect]
     Active Substance: TRAMADOL\TRAMADOL HYDROCHLORIDE
     Indication: Pyelonephritis
     Dosage: 100 MILLIGRAM, Q8H
     Route: 042
     Dates: start: 20230405, end: 20230410
  2. CEFTRIAXONE [Suspect]
     Active Substance: CEFTRIAXONE\CEFTRIAXONE SODIUM
     Indication: Pyelonephritis acute
     Dosage: 2 GRAM, QD
     Route: 042
     Dates: start: 20230404, end: 20230407

REACTIONS (1)
  - Mixed liver injury [Recovering/Resolving]

NARRATIVE: CASE EVENT DATE: 20230410
